FAERS Safety Report 17620081 (Version 4)
Quarter: 2021Q2

REPORT INFORMATION
  Report Type: Spontaneous
  Country: IT (occurrence: IT)
  Receive Date: 20200402
  Receipt Date: 20210531
  Transmission Date: 20210716
  Serious: Yes (Death, Hospitalization, Other)
  Sender: FDA-Public Use
  Company Number: IT-CELLTRION INC.-2020IT021131

PATIENT

DRUGS (5)
  1. BENDAMUSTINE [Suspect]
     Active Substance: BENDAMUSTINE
     Indication: FOLLICULAR LYMPHOMA
     Dosage: UNK, CYCLIC
     Route: 042
  2. BENDAMUSTINE [Suspect]
     Active Substance: BENDAMUSTINE
     Dosage: UNK
     Route: 065
  3. RITUXIMAB (UNKNOWN) [Suspect]
     Active Substance: RITUXIMAB
     Indication: FOLLICULAR LYMPHOMA
     Dosage: UNK
     Route: 065
  4. RITUXIMAB (UNKNOWN) [Suspect]
     Active Substance: RITUXIMAB
     Indication: FOLLICULAR LYMPHOMA
     Dosage: UNK UNK, CYCLIC (2 CYCLES)
     Route: 065
  5. BENDAMUSTINE [Suspect]
     Active Substance: BENDAMUSTINE
     Indication: FOLLICULAR LYMPHOMA
     Dosage: UNK
     Route: 065

REACTIONS (7)
  - Product use issue [Unknown]
  - Progressive multifocal leukoencephalopathy [Fatal]
  - Hemianopia [Fatal]
  - Dizziness [Fatal]
  - JC virus infection [Fatal]
  - Ataxia [Fatal]
  - Tremor [Fatal]
